FAERS Safety Report 6678573-8 (Version None)
Quarter: 2010Q2

REPORT INFORMATION
  Report Type: 
  Country: None (occurrence: None)
  Receive Date: 20100408
  Receipt Date: 20100325
  Transmission Date: 20101027
  Serious: Yes (Disabling)
  Sender: FDA-Public Use
  Company Number: 548334

PATIENT
  Age: 72 Year
  Sex: Female

DRUGS (7)
  1. METHOTREXATE [Suspect]
     Indication: RHEUMATOID ARTHRITIS
     Dosage: 20 MG (1 WEEK ) SUBCUTANEOUS
     Route: 058
     Dates: start: 20061203, end: 20100305
  2. (ETANERCEPT) [Suspect]
     Indication: RHEUMATOID ARTHRITIS
     Dosage: 50 MG (1 WEEK ) SUBCUTANEOUS
     Route: 058
     Dates: start: 20091106, end: 20100305
  3. (CO-AMILOFRUSE) [Concomitant]
  4. ACETAMINOPHEN AND CODEINE PHOSPHATE [Concomitant]
  5. (LEVOTHYROXINE SOLDIUM) [Concomitant]
  6. SOTALOL HCL [Concomitant]
  7. (WARFARIN SODIUM) [Concomitant]

REACTIONS (1)
  - INTERSTITIAL LUNG DISEASE [None]
